FAERS Safety Report 8961626 (Version 1)
Quarter: 2012Q4

REPORT INFORMATION
  Report Type: 
  Country: DE (occurrence: DE)
  Receive Date: 20121213
  Receipt Date: 20121213
  Transmission Date: 20130627
  Serious: Yes (Hospitalization)
  Sender: FDA-Public Use
  Company Number: DE-ELI_LILLY_AND_COMPANY-DE201212000831

PATIENT
  Age: 57 Year
  Sex: Female

DRUGS (6)
  1. FORSTEO [Suspect]
     Indication: OSTEOPOROSIS
     Dosage: UNK
     Route: 058
     Dates: start: 20111110
  2. CORTISONE [Concomitant]
     Dosage: UNK, unknown
  3. ENBREL                                  /SCH/ [Concomitant]
     Dosage: UNK, weekly (1/W)
  4. CALCIUM [Concomitant]
     Dosage: UNK, unknown
  5. VITAMIN D [Concomitant]
     Dosage: UNK, unknown
  6. VITAMIN B12 [Concomitant]
     Dosage: UNK, unknown

REACTIONS (1)
  - Wrist surgery [Recovered/Resolved]
